FAERS Safety Report 7129031-8 (Version None)
Quarter: 2010Q4

REPORT INFORMATION
  Report Type: 
  Country: None (occurrence: None)
  Receive Date: 20101130
  Receipt Date: 20101119
  Transmission Date: 20110411
  Serious: Yes (Death)
  Sender: FDA-Public Use
  Company Number: HU-JNJFOC-20101108604

PATIENT
  Age: 60 Year
  Sex: Male

DRUGS (1)
  1. INFLIXIMAB, RECOMBINANT [Suspect]
     Indication: INFLAMMATORY BOWEL DISEASE
     Route: 042

REACTIONS (2)
  - SEPSIS [None]
  - SURGERY [None]
